FAERS Safety Report 24098170 (Version 3)
Quarter: 2025Q3

REPORT INFORMATION
  Report Type: Spontaneous
  Country: EU (occurrence: EU)
  Receive Date: 20240716
  Receipt Date: 20250915
  Transmission Date: 20251021
  Serious: Yes (Hospitalization, Disabling, Other)
  Sender: BAYER HEALTHCARE PHARMACEUTICALS INC.
  Company Number: EU-GEN-2024-2088

PATIENT
  Age: 24 Year
  Sex: Male

DRUGS (26)
  1. CIPROFLOXACIN HYDROCHLORIDE [Interacting]
     Active Substance: CIPROFLOXACIN HYDROCHLORIDE
     Indication: Painful ejaculation
     Dosage: 500 MG, BID
     Route: 048
  2. SILDENAFIL [Suspect]
     Active Substance: SILDENAFIL
     Indication: Neuropathy peripheral
     Dosage: 50 MG, QD
  3. SILDENAFIL [Suspect]
     Active Substance: SILDENAFIL
     Indication: Painful ejaculation
  4. ESCITALOPRAM [Interacting]
     Active Substance: ESCITALOPRAM OXALATE
     Indication: Insomnia
     Dosage: 10 MG, QD
     Route: 048
  5. ESCITALOPRAM [Interacting]
     Active Substance: ESCITALOPRAM OXALATE
     Indication: Depression
  6. SILDENAFIL [Suspect]
     Active Substance: SILDENAFIL
     Indication: Sexual dysfunction
  7. MIANSERIN [Interacting]
     Active Substance: MIANSERIN
     Indication: Anxiety
     Dosage: 30 MG, QD
     Route: 048
  8. LEVOFLOXACIN [Interacting]
     Active Substance: LEVOFLOXACIN
     Indication: Depression
     Dosage: 1000 MG, QD
     Route: 048
  9. VALPROIC ACID [Suspect]
     Active Substance: VALPROIC ACID
     Indication: Painful ejaculation
     Route: 042
  10. VALPROIC ACID [Suspect]
     Active Substance: VALPROIC ACID
     Indication: Pain
  11. TAMSULOSIN HYDROCHLORIDE [Suspect]
     Active Substance: TAMSULOSIN HYDROCHLORIDE
     Indication: Painful ejaculation
     Dosage: 0.4 MG, HS (SUSTAINED RELEASE) TAMSULOSIN SRPER NIGHT
     Route: 042
  12. TAMSULOSIN HYDROCHLORIDE [Suspect]
     Active Substance: TAMSULOSIN HYDROCHLORIDE
     Indication: Perineal pain
  13. PREGABALIN [Suspect]
     Active Substance: PREGABALIN
     Indication: Painful ejaculation
     Dosage: 25 MG, QD
  14. ALPRAZOLAM [Suspect]
     Active Substance: ALPRAZOLAM
     Indication: Anxiety
     Dosage: 0.5 MG, QD
  15. LIDOCAINE HYDROCHLORIDE [Suspect]
     Active Substance: LIDOCAINE HYDROCHLORIDE
     Indication: Painful ejaculation
     Route: 042
  16. LIDOCAINE HYDROCHLORIDE [Suspect]
     Active Substance: LIDOCAINE HYDROCHLORIDE
     Indication: Pain
  17. METAMIZOLE [Suspect]
     Active Substance: METAMIZOLE
     Indication: Pain
  18. METAMIZOLE [Suspect]
     Active Substance: METAMIZOLE
     Indication: Painful ejaculation
  19. DICLOFENAC [Suspect]
     Active Substance: DICLOFENAC
     Indication: Painful ejaculation
     Dosage: 100 MG, QD
     Route: 054
  20. MAGNESIUM SULFATE [Suspect]
     Active Substance: MAGNESIUM SULFATE
     Indication: Pain
  21. MIANSERIN [Interacting]
     Active Substance: MIANSERIN
     Indication: Depression
  22. MIANSERIN [Interacting]
     Active Substance: MIANSERIN
     Indication: Insomnia
  23. DICLOFENAC [Suspect]
     Active Substance: DICLOFENAC
     Indication: Painful ejaculation
     Dosage: 50 MG, BID
  24. VORTIOXETINE [Concomitant]
     Active Substance: VORTIOXETINE
  25. MELATONIN [Concomitant]
     Active Substance: MELATONIN
     Indication: Insomnia
     Route: 065
  26. MELATONIN [Concomitant]
     Active Substance: MELATONIN
     Indication: Depression

REACTIONS (10)
  - Pain [Recovered/Resolved]
  - Perineal pain [Recovered/Resolved with Sequelae]
  - Anxiety [Unknown]
  - Condition aggravated [Recovering/Resolving]
  - Product prescribing error [Unknown]
  - Painful ejaculation [Recovered/Resolved with Sequelae]
  - Groin pain [Not Recovered/Not Resolved]
  - Drug-disease interaction [Recovered/Resolved with Sequelae]
  - Burning sensation [Not Recovered/Not Resolved]
  - Product use in unapproved indication [None]
